FAERS Safety Report 6197070-X (Version None)
Quarter: 2009Q2

REPORT INFORMATION
  Report Type: 
  Country: None (occurrence: None)
  Receive Date: 20090520
  Receipt Date: 20090508
  Transmission Date: 20091009
  Serious: Yes (Other)
  Sender: FDA-Public Use
  Company Number: JP-PFIZER INC-2009200560

PATIENT
  Age: 35 Year

DRUGS (4)
  1. ZOLOFT [Suspect]
     Indication: DEPRESSED MOOD
     Dosage: 50 MG, UNK
     Route: 048
     Dates: start: 20090306, end: 20090403
  2. DEPAS [Suspect]
     Indication: NERVOUSNESS
     Dosage: 3 MG, 3X/DAY
     Route: 048
     Dates: start: 20081008, end: 20090403
  3. DEPAS [Suspect]
     Indication: IRRITABILITY
  4. ABILIFY [Concomitant]
     Indication: SOCIAL AVOIDANT BEHAVIOUR
     Dosage: UNK
     Route: 048
     Dates: start: 20081003

REACTIONS (3)
  - DECREASED APPETITE [None]
  - GRAND MAL CONVULSION [None]
  - LOSS OF CONSCIOUSNESS [None]
